FAERS Safety Report 8410676 (Version 4)
Quarter: 2015Q2

REPORT INFORMATION
  Report Type: Spontaneous
  Country: US (occurrence: US)
  Receive Date: 20120217
  Receipt Date: 20150506
  Transmission Date: 20150821
  Serious: Yes (Death, Hospitalization, Other)
  Sender: FDA-Public Use
  Company Number: US-GLAXOSMITHKLINE-A0953500A

PATIENT
  Age: 71 Year
  Sex: Male

DRUGS (3)
  1. VOTRIENT [Suspect]
     Active Substance: PAZOPANIB HYDROCHLORIDE
     Dosage: 200 MG, TID
     Route: 048
     Dates: start: 20110720
  2. VOTRIENT [Suspect]
     Active Substance: PAZOPANIB HYDROCHLORIDE
     Indication: RENAL CANCER
     Dosage: 400 MG, BID
     Route: 048
     Dates: start: 20110721
  3. CIMETIDINE [Concomitant]
     Active Substance: CIMETIDINE

REACTIONS (19)
  - Pneumonia [Unknown]
  - Death [Fatal]
  - Metastases to liver [Unknown]
  - Flatulence [Not Recovered/Not Resolved]
  - Diarrhoea [Unknown]
  - Pleural effusion [Unknown]
  - Living in residential institution [Unknown]
  - Dyspnoea [Unknown]
  - Metastases to lung [Unknown]
  - Hypercalcaemia [Unknown]
  - Constipation [Unknown]
  - Metastatic renal cell carcinoma [Unknown]
  - Metastases to bone [Unknown]
  - Fatigue [Not Recovered/Not Resolved]
  - Dysgeusia [Not Recovered/Not Resolved]
  - Disease progression [Unknown]
  - Pulmonary mass [Unknown]
  - Lymphadenopathy [Unknown]
  - Lymphatic system neoplasm [Unknown]

NARRATIVE: CASE EVENT DATE: 20141104
